FAERS Safety Report 11340669 (Version 1)
Quarter: 2015Q3

REPORT INFORMATION
  Report Type: Spontaneous
  Country: US (occurrence: None)
  Receive Date: 20150803
  Receipt Date: 20150803
  Transmission Date: 20151125
  Serious: No
  Sender: FDA-Public Use
  Company Number: None

PATIENT
  Age: 29 Year
  Sex: Male

DRUGS (1)
  1. TRANYLCYPROMINE [Suspect]
     Active Substance: TRANYLCYPROMINE
     Indication: DEPRESSION
     Route: 048
     Dates: start: 20140829

REACTIONS (3)
  - Headache [None]
  - Hypertension [None]
  - Photophobia [None]

NARRATIVE: CASE EVENT DATE: 20140829
